FAERS Safety Report 6299308-7 (Version None)
Quarter: 2009Q3

REPORT INFORMATION
  Report Type: 
  Country: None (occurrence: None)
  Receive Date: 20090806
  Receipt Date: 20090731
  Transmission Date: 20100115
  Serious: Yes (Other)
  Sender: FDA-Public Use
  Company Number: US-PFIZER INC-2004110442

PATIENT
  Sex: Female
  Weight: 63 kg

DRUGS (10)
  1. PROVERA [Suspect]
     Indication: HORMONE REPLACEMENT THERAPY
     Dosage: UNK
     Route: 065
  2. MEDROXYPROGESTERONE AND MEDROXYPROGESTERONE ACETATE [Suspect]
     Indication: HORMONE REPLACEMENT THERAPY
     Dosage: 5 MG, UNK
     Dates: start: 19911001, end: 20000601
  3. PREMARIN [Suspect]
     Indication: HORMONE REPLACEMENT THERAPY
     Dosage: 0.9 MG, UNK
     Route: 065
     Dates: start: 19911001, end: 20000601
  4. PREMPRO [Suspect]
     Indication: HORMONE REPLACEMENT THERAPY
     Dosage: UNK
     Dates: start: 19970701, end: 19971201
  5. HYDROCHLOROTHIAZIDE [Concomitant]
     Indication: HYPERTENSION
     Dosage: UNK
     Dates: start: 19990915
  6. ZOLOFT [Concomitant]
     Indication: DEPRESSION
     Dosage: UNK
     Dates: start: 19940609
  7. VOLTAREN [Concomitant]
     Indication: ARTHRITIS
     Dosage: UNK
     Dates: start: 19960801
  8. SEREVENT [Concomitant]
     Dosage: UNK
     Dates: start: 19951023, end: 20021108
  9. ALBUTEROL [Concomitant]
     Dosage: UNK
     Dates: start: 19970522, end: 20021108
  10. AZMACORT [Concomitant]
     Dosage: UNK
     Dates: start: 19960525, end: 20040816

REACTIONS (1)
  - BREAST CANCER FEMALE [None]
